FAERS Safety Report 8837304 (Version 2)
Quarter: 2012Q4

REPORT INFORMATION
  Report Type: Report from Study
  Country: JP (occurrence: JP)
  Receive Date: 20121012
  Receipt Date: 20121206
  Transmission Date: 20130627
  Serious: Yes (Other)
  Sender: FDA-Public Use
  Company Number: JP-009507513-1210JPN002729

PATIENT
  Age: 80 Year
  Sex: Female

DRUGS (8)
  1. ZOLINZA CAPSULES 100MG [Suspect]
     Indication: MYCOSIS FUNGOIDES
     Dosage: 400 mg, qd
     Route: 048
     Dates: start: 20120621, end: 20120918
  2. ZOLINZA CAPSULES 100MG [Suspect]
     Dosage: 300 mg, qd
     Route: 048
     Dates: start: 20120919
  3. ALLEGRA [Concomitant]
     Indication: MYCOSIS FUNGOIDES
     Dosage: 60 mg, bid
     Route: 048
     Dates: start: 20111024
  4. ATARAX P [Concomitant]
     Indication: MYCOSIS FUNGOIDES
     Dosage: 25 mg, qd
     Route: 048
     Dates: start: 20110120
  5. THYRADIN-S [Concomitant]
     Indication: HYPOTHYROIDISM
     Dosage: 25 Microgram, qd
     Route: 048
     Dates: start: 20120621
  6. EMEND [Concomitant]
     Indication: PROPHYLAXIS
     Dosage: 125 mg, qd
     Route: 048
     Dates: start: 20120621, end: 20120621
  7. EMEND [Concomitant]
     Dosage: 80 mg, qd
     Route: 048
     Dates: start: 20120622, end: 20120628
  8. PARIET [Concomitant]
     Dosage: 100 mg, qd
     Route: 048
     Dates: start: 20120824

REACTIONS (4)
  - Nausea [Not Recovered/Not Resolved]
  - Thrombocytopenia [Not Recovered/Not Resolved]
  - Renal impairment [Not Recovered/Not Resolved]
  - Dysgeusia [Not Recovered/Not Resolved]
